FAERS Safety Report 9242850 (Version 2)
Quarter: 2013Q2

REPORT INFORMATION
  Report Type: Spontaneous
  Country: FR (occurrence: FR)
  Receive Date: 20130419
  Receipt Date: 20130528
  Transmission Date: 20140414
  Serious: Yes (Other)
  Sender: FDA-Public Use
  Company Number: FR-JNJFOC-20130409497

PATIENT
  Age: 48 Year
  Sex: Male
  Weight: 75 kg

DRUGS (6)
  1. IXPRIM [Suspect]
     Indication: RIB FRACTURE
     Route: 048
     Dates: start: 20130302, end: 20130312
  2. IXPRIM [Suspect]
     Indication: MUSCULOSKELETAL CHEST PAIN
     Route: 048
     Dates: start: 20130302, end: 20130312
  3. DICLOFENAC [Concomitant]
     Indication: RIB FRACTURE
     Route: 065
     Dates: start: 20130302, end: 20130312
  4. DICLOFENAC [Concomitant]
     Indication: MUSCULOSKELETAL CHEST PAIN
     Route: 065
     Dates: start: 20130302, end: 20130312
  5. ZYPREXA [Concomitant]
     Indication: BIPOLAR DISORDER
     Route: 048
     Dates: start: 201303
  6. ZYPREXA [Concomitant]
     Indication: BIPOLAR DISORDER
     Route: 048
     Dates: start: 2004

REACTIONS (3)
  - Bipolar disorder [Recovered/Resolved with Sequelae]
  - Visual impairment [Recovered/Resolved]
  - Abdominal pain [Recovered/Resolved]
